FAERS Safety Report 18436354 (Version 2)
Quarter: 2020Q4

REPORT INFORMATION
  Report Type: Spontaneous
  Country: KR (occurrence: KR)
  Receive Date: 20201028
  Receipt Date: 20201029
  Transmission Date: 20210114
  Serious: Yes (Hospitalization)
  Sender: FDA-Public Use
  Company Number: NVSC2020KR287576

PATIENT
  Age: 56 Year
  Sex: Male
  Weight: 66.1 kg

DRUGS (35)
  1. MYCOPHENOLIC ACID. [Suspect]
     Active Substance: MYCOPHENOLIC ACID
     Indication: IMMUNE DISORDER PROPHYLAXIS
     Dosage: 250 MG, QD
     Route: 048
     Dates: start: 20140622, end: 20150705
  2. ACETYLSALICYLIC ACID [Concomitant]
     Active Substance: ASPIRIN
     Indication: PROPHYLAXIS
     Dosage: 100 MG, QD
     Route: 048
     Dates: start: 20140627, end: 20140629
  3. ALBUMIN [Concomitant]
     Active Substance: ALBUMIN HUMAN
     Indication: PROPHYLAXIS
     Dosage: 100 ML, QD
     Route: 042
     Dates: start: 20140702, end: 20140702
  4. AMPHOTERICIN B. [Concomitant]
     Active Substance: AMPHOTERICIN B
     Indication: PROPHYLAXIS
     Dosage: 70.85 MG, QD
     Route: 042
     Dates: start: 20140620, end: 20140626
  5. ESOMEPRAZOLE. [Concomitant]
     Active Substance: ESOMEPRAZOLE MAGNESIUM
     Dosage: 20 MG, QD (FILM COATED TABLET)
     Route: 048
     Dates: end: 20140705
  6. URSODEOXYCHOLIC ACID [Concomitant]
     Active Substance: URSODIOL
     Indication: PROPHYLAXIS
     Dosage: 600 MG, QD
     Route: 048
     Dates: start: 20140627, end: 20140629
  7. ACETYLSALICYLIC ACID [Concomitant]
     Active Substance: ASPIRIN
     Dosage: 100 MG, QD
     Route: 048
     Dates: start: 20140705, end: 20140705
  8. ESOMEPRAZOLE. [Concomitant]
     Active Substance: ESOMEPRAZOLE MAGNESIUM
     Dosage: 40 MG, QD (POWDER FOR SOLUTION FOR INJECTION)
     Route: 042
     Dates: start: 20140619, end: 20140626
  9. SULFAMETHOXAZOLE AND TRIMETHOPRIM [Concomitant]
     Active Substance: SULFAMETHOXAZOLE\TRIMETHOPRIM
     Indication: PROPHYLAXIS
     Dosage: 2 DF, QD
     Route: 048
     Dates: start: 20140627, end: 20140629
  10. SULFAMETHOXAZOLE AND TRIMETHOPRIM [Concomitant]
     Active Substance: SULFAMETHOXAZOLE\TRIMETHOPRIM
     Dosage: 2 DF, BID
     Route: 048
     Dates: start: 20140705, end: 20140705
  11. HEPATITIS B IMMUNE GLOBULIN [Concomitant]
     Active Substance: HUMAN HEPATITIS B VIRUS IMMUNE GLOBULIN
     Indication: PROPHYLAXIS
     Dosage: 10000 IU, QD
     Route: 042
     Dates: start: 20140620, end: 20140626
  12. METRONIDAZOLE. [Concomitant]
     Active Substance: METRONIDAZOLE
     Indication: PROPHYLAXIS
     Dosage: 1500 MG, QD
     Route: 042
     Dates: start: 20140618, end: 20140626
  13. GANCICLOVIR. [Concomitant]
     Active Substance: GANCICLOVIR
     Indication: PROPHYLAXIS
     Dosage: 250 MG, QD
     Route: 042
     Dates: start: 20140620, end: 20140626
  14. ANTITHROMBIN III [Concomitant]
     Active Substance: ANTITHROMBIN III HUMAN
     Indication: PROPHYLAXIS
     Dosage: 500 IU, QD
     Route: 042
     Dates: start: 20140619, end: 20140626
  15. INSULIN HUMAN [Concomitant]
     Active Substance: INSULIN HUMAN
     Dosage: 18 IU, QD
     Route: 058
     Dates: start: 20140625, end: 20140705
  16. TACROLIMUS. [Concomitant]
     Active Substance: TACROLIMUS
     Dosage: 2.5 MG, QD (CAPSULE HARD POWDER)
     Route: 048
     Dates: start: 20140623, end: 20140705
  17. SIMULECT [Suspect]
     Active Substance: BASILIXIMAB
     Indication: IMMUNE DISORDER PROPHYLAXIS
     Dosage: 20 MG, QD
     Route: 042
     Dates: start: 20140623, end: 20140623
  18. AMBROXOL [Concomitant]
     Active Substance: AMBROXOL
     Dosage: 90 MG, QD (TABLET UNCOATED)
     Route: 048
     Dates: start: 20140627, end: 20140629
  19. CEFTRIAXONE. [Concomitant]
     Active Substance: CEFTRIAXONE
     Indication: PROPHYLAXIS
     Dosage: 2000 MG, QD
     Route: 042
     Dates: start: 20140618, end: 20140704
  20. FUROSEMIDE. [Concomitant]
     Active Substance: FUROSEMIDE
     Indication: PROPHYLAXIS
     Dosage: 20 MG, QD
     Route: 030
     Dates: start: 20140702, end: 20140702
  21. NYSTATIN. [Concomitant]
     Active Substance: NYSTATIN
     Indication: PROPHYLAXIS
     Dosage: 12 ML, QD (SUSPENSION)
     Route: 048
     Dates: start: 20140623, end: 20140630
  22. TACROLIMUS. [Concomitant]
     Active Substance: TACROLIMUS
     Indication: PROPHYLAXIS
     Dosage: 1.5 MG, QD (SOLUTION FOR INJECTION)
     Route: 042
     Dates: start: 20140620, end: 20140624
  23. ALPROSTADIL. [Concomitant]
     Active Substance: ALPROSTADIL
     Indication: PROPHYLAXIS
     Dosage: 1000 UG, QD
     Route: 042
     Dates: start: 20140620, end: 20140630
  24. METHYLPREDNISOLONE. [Concomitant]
     Active Substance: METHYLPREDNISOLONE
     Dosage: 24 MG, QD (TABLET UNCOATED)
     Route: 048
     Dates: start: 20140701, end: 20140705
  25. PETHIDINE [Concomitant]
     Active Substance: MEPERIDINE
     Indication: PROPHYLAXIS
     Dosage: 25 MG, QD
     Route: 042
     Dates: start: 20140626, end: 20140626
  26. URSODEOXYCHOLIC ACID [Concomitant]
     Active Substance: URSODIOL
     Dosage: 600 MG, QD
     Route: 048
     Dates: start: 20140705, end: 20140705
  27. ACICLOVIR [Concomitant]
     Active Substance: ACYCLOVIR
     Indication: PROPHYLAXIS
     Dosage: 600 MG, QD
     Route: 048
     Dates: start: 20140627, end: 20140629
  28. ACICLOVIR [Concomitant]
     Active Substance: ACYCLOVIR
     Dosage: 600 MG, QD
     Route: 048
     Dates: start: 20140705, end: 20140705
  29. AMBROXOL [Concomitant]
     Active Substance: AMBROXOL
     Indication: PROPHYLAXIS
     Dosage: 45 MG, QD (SOLUTION INJECTION)
     Route: 042
     Dates: start: 20140619, end: 20140626
  30. ESOMEPRAZOLE. [Concomitant]
     Active Substance: ESOMEPRAZOLE MAGNESIUM
     Indication: PROPHYLAXIS
     Dosage: 20 MG, QD (FILM COATED TABLET)
     Route: 048
     Dates: start: 20140627
  31. FENTANYL. [Concomitant]
     Active Substance: FENTANYL
     Indication: PROPHYLAXIS
     Dosage: 4.2 MG, TID (EXTERNAL USE, TRANSDERMAL SYSTEMS EXTENDED RELEASE)
     Route: 065
     Dates: start: 20140626, end: 20140626
  32. INSULIN HUMAN [Concomitant]
     Active Substance: INSULIN HUMAN
     Indication: PROPHYLAXIS
     Dosage: 50 IU, QD
     Route: 058
     Dates: start: 20140620, end: 20140625
  33. METHYLPREDNISOLONE. [Concomitant]
     Active Substance: METHYLPREDNISOLONE
     Indication: PROPHYLAXIS
     Dosage: 135 MG, QD (POWDER FOR SOLUTION FOR INJECTION)
     Route: 042
     Dates: start: 20140620, end: 20140630
  34. SUCRALFATE. [Concomitant]
     Active Substance: SUCRALFATE
     Indication: PROPHYLAXIS
     Dosage: 60 ML, QD (SUSPENSION)
     Route: 048
     Dates: start: 20140620, end: 20140705
  35. TRAMADOL. [Concomitant]
     Active Substance: TRAMADOL
     Indication: PROPHYLAXIS
     Dosage: 50 MG, QD
     Route: 042
     Dates: start: 20140625, end: 20140625

REACTIONS (1)
  - Ileal ulcer perforation [Recovered/Resolved]

NARRATIVE: CASE EVENT DATE: 20140705
